FAERS Safety Report 4354443-5 (Version None)
Quarter: 2004Q2

REPORT INFORMATION
  Report Type: 
  Country: None (occurrence: None)
  Receive Date: 20040503
  Receipt Date: 20040420
  Transmission Date: 20050107
  Serious: Yes (Hospitalization, Other)
  Sender: FDA-Public Use
  Company Number: 2003113570

PATIENT
  Sex: Female

DRUGS (3)
  1. ZITHROMAX [Suspect]
     Indication: INFECTION
     Dosage: 500 MG (DAILY), ORAL
     Route: 048
     Dates: start: 20030711, end: 20030713
  2. PL GRAN (CAFFEINE, SALICYLAMIDE, PARACETAMOL, PROMETHAZINE METHYLENE D [Suspect]
     Indication: INFECTION
     Dosage: 3 GRAM, ORAL
     Route: 048
     Dates: start: 20030711, end: 20030713
  3. TRIAZOLAM [Suspect]
     Indication: ILL-DEFINED DISORDER

REACTIONS (3)
  - DIALYSIS [None]
  - EXTRAPYRAMIDAL DISORDER [None]
  - GAIT DISTURBANCE [None]
